FAERS Safety Report 13608874 (Version 1)
Quarter: 2017Q2

REPORT INFORMATION
  Report Type: Spontaneous
  Country: TR (occurrence: TR)
  Receive Date: 20170602
  Receipt Date: 20170602
  Transmission Date: 20170830
  Serious: Yes (Hospitalization)
  Sender: FDA-Public Use
  Company Number: TR-FRESENIUS KABI-FK201704652

PATIENT
  Age: 58 Year
  Sex: Male

DRUGS (4)
  1. PROPOFOL 1% (MANUFACTURER UNKNOWN) [Suspect]
     Active Substance: PROPOFOL
     Indication: INDUCTION OF ANAESTHESIA
     Route: 013
  2. MIDAZOLAM [Concomitant]
     Active Substance: MIDAZOLAM HYDROCHLORIDE
     Indication: SEDATION
     Route: 042
  3. MIDAZOLAM [Concomitant]
     Active Substance: MIDAZOLAM HYDROCHLORIDE
     Indication: INDUCTION OF ANAESTHESIA
     Route: 013
  4. FENTANYL. [Concomitant]
     Active Substance: FENTANYL
     Indication: SEDATION

REACTIONS (3)
  - Burning sensation [Recovered/Resolved]
  - Hypoaesthesia [Recovered/Resolved]
  - Incorrect route of drug administration [Recovered/Resolved]
